FAERS Safety Report 6738971-0 (Version None)
Quarter: 2010Q2

REPORT INFORMATION
  Report Type: 
  Country: None (occurrence: None)
  Receive Date: 20100521
  Receipt Date: 20100507
  Transmission Date: 20101027
  Serious: Yes (Life-Threatening, Hospitalization, Other)
  Sender: FDA-Public Use
  Company Number: A-NJ2010-36055

PATIENT
  Age: 57 Year
  Sex: Male
  Weight: 99.8 kg

DRUGS (17)
  1. TRACLEER [Suspect]
     Indication: PULMONARY ARTERIAL HYPERTENSION
     Dosage: 62.5 MG, BID, ORAL
     Route: 048
     Dates: start: 20100121
  2. ASPIRIN [Concomitant]
  3. JANUVIA [Concomitant]
  4. LISINOPRIL [Concomitant]
  5. METOPROLOL [Concomitant]
  6. PLAVIX [Concomitant]
  7. FUROSEMIDE [Concomitant]
  8. SYNTHROID [Concomitant]
  9. NITROGLYCERIN (CLYCERYL TRINITRATE) [Concomitant]
  10. COUMADIN [Concomitant]
  11. HUMALOG [Concomitant]
  12. SERTRALINE HCL [Concomitant]
  13. PROTONIX [Concomitant]
  14. SPIRONOLACTONE [Concomitant]
  15. LIPITOR [Concomitant]
  16. POTASSIUM CHLORIDE [Concomitant]
  17. MELOXICAM [Concomitant]

REACTIONS (2)
  - MYOCARDIAL INFARCTION [None]
  - TREATMENT NONCOMPLIANCE [None]
